FAERS Safety Report 7504349-5 (Version None)
Quarter: 2011Q2

REPORT INFORMATION
  Report Type: 
  Country: None (occurrence: None)
  Receive Date: 20110525
  Receipt Date: 20110415
  Transmission Date: 20111010
  Serious: Yes (Other)
  Sender: FDA-Public Use
  Company Number: US-BAXTER-2010BH002782

PATIENT
  Age: 62 Year
  Sex: Male
  Weight: 85 kg

DRUGS (11)
  1. HEPARIN SODIUM INJECTION [Suspect]
     Indication: THROMBOSIS PROPHYLAXIS
     Route: 065
     Dates: start: 20080201, end: 20080201
  2. FLOVENT [Concomitant]
     Indication: PRODUCT USED FOR UNKNOWN INDICATION
     Route: 065
  3. HEPARIN SODIUM INJECTION [Suspect]
     Route: 042
     Dates: start: 20080206, end: 20080229
  4. HEPARIN SODIUM INJECTION [Suspect]
     Indication: HERNIA REPAIR
     Route: 065
     Dates: start: 20080201, end: 20080201
  5. HEPARIN SODIUM INJECTION [Suspect]
     Indication: SURGERY
     Route: 065
     Dates: start: 20080201, end: 20080201
  6. HEPARIN SODIUM INJECTION [Suspect]
     Route: 042
     Dates: start: 20080206, end: 20080229
  7. HEPARIN SODIUM INJECTION [Suspect]
     Route: 042
     Dates: start: 20080206, end: 20080229
  8. ASPIRIN [Concomitant]
     Indication: PRODUCT USED FOR UNKNOWN INDICATION
     Route: 065
  9. CORREIGE [Concomitant]
     Indication: PRODUCT USED FOR UNKNOWN INDICATION
     Route: 065
  10. PROZAC [Concomitant]
     Indication: PRODUCT USED FOR UNKNOWN INDICATION
     Route: 065
  11. HYDROCHLOROTHIAZIDE [Concomitant]
     Indication: PRODUCT USED FOR UNKNOWN INDICATION
     Route: 065

REACTIONS (4)
  - BLOOD PRESSURE FLUCTUATION [None]
  - DYSPNOEA [None]
  - CHRONIC OBSTRUCTIVE PULMONARY DISEASE [None]
  - STAPHYLOCOCCAL INFECTION [None]
